FAERS Safety Report 6376332-7 (Version None)
Quarter: 2009Q3

REPORT INFORMATION
  Report Type: 
  Country: None (occurrence: None)
  Receive Date: 20090918
  Receipt Date: 20090918
  Transmission Date: 20100115
  Serious: Yes (Other)
  Sender: FDA-Public Use
  Company Number: None

PATIENT
  Age: 72 Year
  Sex: Female

DRUGS (6)
  1. PENTOSTATIN [Suspect]
     Indication: T-CELL PROLYMPHOCYTIC LEUKAEMIA
     Dates: start: 20060101
  2. ALEMTUZUMAB [Suspect]
     Indication: T-CELL PROLYMPHOCYTIC LEUKAEMIA
     Dates: start: 20060101
  3. ANTIBIOTICS [Concomitant]
  4. ALBENDAZOLE [Concomitant]
  5. SULFADIAZINE [Concomitant]
  6. PYRIMETHIAMINE [Concomitant]

REACTIONS (9)
  - BONE MARROW DISORDER [None]
  - CACHEXIA [None]
  - DYSURIA [None]
  - GENERAL PHYSICAL HEALTH DETERIORATION [None]
  - IMMUNOSUPPRESSION [None]
  - INFECTION PROTOZOAL [None]
  - MICROSPORIDIA INFECTION [None]
  - PANCYTOPENIA [None]
  - TOXOPLASMOSIS [None]
